FAERS Safety Report 15485737 (Version 1)
Quarter: 2018Q4

REPORT INFORMATION
  Report Type: Spontaneous
  Country: CA (occurrence: CA)
  Receive Date: 20181010
  Receipt Date: 20181010
  Transmission Date: 20190205
  Serious: Yes (Other)
  Sender: FDA-Public Use
  Company Number: CA-GEHC-2018CSU003981

PATIENT

DRUGS (1)
  1. OMNIPAQUE [Suspect]
     Active Substance: IOHEXOL
     Indication: PRODUCT USED FOR UNKNOWN INDICATION
     Dosage: 80 ML, SINGLE
     Route: 042
     Dates: start: 20180226, end: 20180226

REACTIONS (4)
  - Unresponsive to stimuli [Recovered/Resolved]
  - Urticaria [Recovered/Resolved]
  - Pulse absent [Recovered/Resolved]
  - Pruritus [Recovered/Resolved]

NARRATIVE: CASE EVENT DATE: 20180226
